FAERS Safety Report 4611545-3 (Version None)
Quarter: 2005Q1

REPORT INFORMATION
  Report Type: 
  Country: None (occurrence: None)
  Receive Date: 20050317
  Receipt Date: 20050308
  Transmission Date: 20050727
  Serious: Yes (Life-Threatening)
  Sender: FDA-Public Use
  Company Number: JP-ROCHE-397666

PATIENT
  Sex: Male

DRUGS (1)
  1. PANALDINE [Suspect]
     Dosage: INDICATION: AFTER CYPHER STENT IMPLANTATION DUE TO PROPHYLAXIS OF RESTENOSIS
     Route: 048
     Dates: end: 20050224

REACTIONS (3)
  - HISTIOCYTOSIS HAEMATOPHAGIC [None]
  - LIVER DISORDER [None]
  - THROMBOTIC THROMBOCYTOPENIC PURPURA [None]
